FAERS Safety Report 21959584 (Version 1)
Quarter: 2023Q1

REPORT INFORMATION
  Report Type: Spontaneous
  Country: FR (occurrence: FR)
  Receive Date: 20230206
  Receipt Date: 20230206
  Transmission Date: 20230417
  Serious: Yes (Hospitalization, Other)
  Sender: FDA-Public Use
  Company Number: FR-SA-SAC20221228000269

PATIENT
  Sex: Female

DRUGS (28)
  1. BOTULINUM TOXIN TYPE A [Suspect]
     Active Substance: BOTULINUM TOXIN TYPE A
     Indication: Product used for unknown indication
     Dosage: UNK UNK, SINGLE
  2. CYPROTERONE ACETATE [Suspect]
     Active Substance: CYPROTERONE ACETATE
     Indication: Product used for unknown indication
     Dosage: UNK
     Dates: start: 200312
  3. CYPROTERONE ACETATE [Suspect]
     Active Substance: CYPROTERONE ACETATE
     Dosage: UNK, QD
     Dates: start: 20051115
  4. CYPROTERONE ACETATE [Suspect]
     Active Substance: CYPROTERONE ACETATE
     Dosage: UNK
     Dates: start: 20060103
  5. CYPROTERONE ACETATE [Suspect]
     Active Substance: CYPROTERONE ACETATE
     Dosage: UNK
     Dates: start: 200812
  6. CYPROTERONE ACETATE [Suspect]
     Active Substance: CYPROTERONE ACETATE
     Dosage: 50 MG
     Dates: start: 20090221
  7. CYPROTERONE ACETATE [Suspect]
     Active Substance: CYPROTERONE ACETATE
     Dosage: 50 MG
     Dates: start: 20090418
  8. CYPROTERONE ACETATE [Suspect]
     Active Substance: CYPROTERONE ACETATE
     Dosage: 50 MG
     Dates: start: 20090511
  9. CYPROTERONE ACETATE [Suspect]
     Active Substance: CYPROTERONE ACETATE
     Dosage: 50 MG
     Dates: start: 20090613
  10. CYPROTERONE ACETATE [Suspect]
     Active Substance: CYPROTERONE ACETATE
     Dosage: 50 MG
     Dates: start: 20090808
  11. CYPROTERONE ACETATE [Suspect]
     Active Substance: CYPROTERONE ACETATE
     Dosage: UNK
     Dates: start: 20090911
  12. CYPROTERONE ACETATE [Suspect]
     Active Substance: CYPROTERONE ACETATE
     Dosage: UNK
     Dates: start: 20100123
  13. ETHAMSYLATE [Suspect]
     Active Substance: ETHAMSYLATE
     Indication: Product used for unknown indication
     Dosage: UNK
     Dates: start: 200905
  14. ACUPAN [Suspect]
     Active Substance: NEFOPAM HYDROCHLORIDE
     Indication: Product used for unknown indication
     Dosage: UNK, QD
  15. CHLORMADINONE ACETATE [Suspect]
     Active Substance: CHLORMADINONE ACETATE
     Indication: Product used for unknown indication
     Dosage: UNK
     Dates: start: 20031117
  16. CHLORMADINONE ACETATE [Suspect]
     Active Substance: CHLORMADINONE ACETATE
     Dosage: UNK
     Dates: start: 20060209
  17. CHLORMADINONE ACETATE [Suspect]
     Active Substance: CHLORMADINONE ACETATE
     Dosage: UNK,1/DAY DURING 3 MONTHS
     Dates: start: 20080107
  18. CHLORMADINONE ACETATE [Suspect]
     Active Substance: CHLORMADINONE ACETATE
     Dosage: UNK,5MG L TABLET/DAY DURING L0 DAYS/MONTHS
     Dates: start: 20080414
  19. CHLORMADINONE ACETATE [Suspect]
     Active Substance: CHLORMADINONE ACETATE
     Dosage: 5 MG
     Dates: start: 20080624
  20. DOLIPRANE [Suspect]
     Active Substance: ACETAMINOPHEN
     Indication: Product used for unknown indication
     Dosage: UNK
  21. MYCOSTER [CICLOPIROX] [Concomitant]
     Dosage: UNK
     Dates: start: 201609
  22. MYCOSTER [CICLOPIROX] [Concomitant]
     Dosage: UNK
     Dates: start: 201405
  23. COLPOSEPTINE [Concomitant]
     Dosage: UNK
     Dates: start: 201307
  24. ALGESIC [PARACETAMOL] [Concomitant]
     Dosage: UNK
  25. SMECTA [MONTMORILLONITE] [Concomitant]
     Dosage: UNK
     Dates: start: 201401
  26. PEVARYL [ECONAZOLE] [Concomitant]
     Dosage: UNK
  27. CYPROTERONE ACETATE [Concomitant]
     Active Substance: CYPROTERONE ACETATE
     Dosage: UNK
  28. FENTICONAZOLE NITRATE [Concomitant]
     Active Substance: FENTICONAZOLE NITRATE
     Dosage: UNK
     Dates: start: 201901

REACTIONS (38)
  - Meningioma [Unknown]
  - Pulmonary embolism [Unknown]
  - Embolism [Unknown]
  - Oculogyric crisis [Unknown]
  - Trismus [Unknown]
  - Procedural pain [Unknown]
  - Skin hypopigmentation [Unknown]
  - Memory impairment [Unknown]
  - Facial pain [Unknown]
  - Balance disorder [Unknown]
  - Sexual dysfunction [Unknown]
  - Job dissatisfaction [Unknown]
  - Pain [Unknown]
  - Scar [Unknown]
  - Periorbital pain [Unknown]
  - Heavy menstrual bleeding [Unknown]
  - Post procedural complication [Unknown]
  - Neuralgia [Unknown]
  - Dyspnoea exertional [Unknown]
  - Dizziness [Unknown]
  - Abnormal behaviour [Unknown]
  - Eye disorder [Unknown]
  - Skin lesion [Unknown]
  - COVID-19 [Unknown]
  - Eye pain [Unknown]
  - Occipital neuralgia [Unknown]
  - Dyslexia [Unknown]
  - Disturbance in attention [Unknown]
  - Allodynia [Unknown]
  - Crying [Unknown]
  - Temporomandibular joint syndrome [Unknown]
  - Mastication disorder [Unknown]
  - Stress [Unknown]
  - Paraesthesia [Unknown]
  - Speech disorder [Unknown]
  - Vertigo [Unknown]
  - Asthenia [Unknown]
  - Headache [Unknown]

NARRATIVE: CASE EVENT DATE: 20151201
